FAERS Safety Report 16754546 (Version 1)
Quarter: 2019Q3

REPORT INFORMATION
  Report Type: Report from Study
  Country: PK (occurrence: PK)
  Receive Date: 20190829
  Receipt Date: 20190829
  Transmission Date: 20191005
  Serious: Yes (Death, Other)
  Sender: FDA-Public Use
  Company Number: PHHY2018PK163064

PATIENT
  Age: 54 Year
  Sex: Male
  Weight: 63 kg

DRUGS (3)
  1. GLIVEC [Suspect]
     Active Substance: IMATINIB MESYLATE
     Indication: CHRONIC MYELOID LEUKAEMIA
     Dosage: 300 MG, 3XQD
     Route: 048
     Dates: start: 20180529, end: 20181117
  2. GLIVEC [Suspect]
     Active Substance: IMATINIB MESYLATE
     Dosage: 3 DF, QD
     Route: 048
  3. GLIVEC [Suspect]
     Active Substance: IMATINIB MESYLATE
     Dosage: 300 MG, 3XQD
     Route: 048
     Dates: end: 20181219

REACTIONS (4)
  - Pancytopenia [Not Recovered/Not Resolved]
  - White blood cell count decreased [Not Recovered/Not Resolved]
  - Bicytopenia [Fatal]
  - Platelet count decreased [Not Recovered/Not Resolved]

NARRATIVE: CASE EVENT DATE: 20181117
